FAERS Safety Report 8109263-2 (Version None)
Quarter: 2012Q1

REPORT INFORMATION
  Report Type: 
  Country: None (occurrence: None)
  Receive Date: 20120202
  Receipt Date: 20120105
  Transmission Date: 20120608
  Serious: No
  Sender: FDA-Public Use
  Company Number: US-AMGEN-USASP2012000591

PATIENT
  Age: 55 Year
  Sex: Female

DRUGS (1)
  1. ENBREL [Suspect]
     Indication: RHEUMATOID ARTHRITIS
     Dosage: 50 MG, QWK
     Dates: start: 20111222

REACTIONS (12)
  - NAUSEA [None]
  - EYE PRURITUS [None]
  - INSOMNIA [None]
  - DIZZINESS [None]
  - SNEEZING [None]
  - NIGHTMARE [None]
  - INJECTION SITE URTICARIA [None]
  - VOMITING [None]
  - ERYTHEMA [None]
  - INJECTION SITE SWELLING [None]
  - INJECTION SITE ERYTHEMA [None]
  - PRODUCTIVE COUGH [None]
